FAERS Safety Report 12950952 (Version 1)
Quarter: 2016Q4

REPORT INFORMATION
  Report Type: Spontaneous
  Country: CN (occurrence: CN)
  Receive Date: 20161117
  Receipt Date: 20161117
  Transmission Date: 20170207
  Serious: Yes (Hospitalization)
  Sender: FDA-Public Use
  Company Number: CN-BAYER-2016-217881

PATIENT
  Age: 18 Year
  Sex: Female

DRUGS (4)
  1. SULBENICILLIN SODIUM [Suspect]
     Active Substance: SULBENICILLIN SODIUM
     Indication: PNEUMONIA
  2. DOXYCYCLINE. [Suspect]
     Active Substance: DOXYCYCLINE
     Indication: PNEUMONIA
  3. MOXIFLOXACIN ORAL [Suspect]
     Active Substance: MOXIFLOXACIN
     Indication: PNEUMONIA
  4. VIDARABINE [Suspect]
     Active Substance: VIDARABINE
     Indication: PNEUMONIA

REACTIONS (1)
  - Central nervous system lesion [Recovered/Resolved]
